FAERS Safety Report 16608945 (Version 1)
Quarter: 2019Q3

REPORT INFORMATION
  Report Type: Report from Study
  Country: None (occurrence: SI)
  Receive Date: 20190722
  Receipt Date: 20190722
  Transmission Date: 20191004
  Serious: Yes (Hospitalization)
  Sender: FDA-Public Use
  Company Number: SI-ABBVIE-19K-261-2860379-00

PATIENT
  Age: 74 Year
  Sex: Male

DRUGS (1)
  1. HUMIRA [Suspect]
     Active Substance: ADALIMUMAB
     Indication: RHEUMATOID ARTHRITIS
     Route: 058
     Dates: start: 20100107

REACTIONS (3)
  - Gastrointestinal haemorrhage [Unknown]
  - Gastrointestinal neoplasm [Not Recovered/Not Resolved]
  - Anal haemorrhage [Not Recovered/Not Resolved]

NARRATIVE: CASE EVENT DATE: 20190621
